FAERS Safety Report 11003280 (Version 1)
Quarter: 2015Q2

REPORT INFORMATION
  Report Type: Report from Study
  Country: US (occurrence: US)
  Receive Date: 20150409
  Receipt Date: 20150409
  Transmission Date: 20150821
  Serious: Yes (Other)
  Sender: FDA-Public Use
  Company Number: US-ROCHE-1560815

PATIENT

DRUGS (8)
  1. NAPROXEN. [Suspect]
     Active Substance: NAPROXEN
     Indication: PROCEDURAL PAIN
     Route: 065
  2. KETOROLAC [Suspect]
     Active Substance: KETOROLAC\KETOROLAC TROMETHAMINE
     Indication: PROCEDURAL PAIN
     Route: 065
  3. IBUPROFEN. [Suspect]
     Active Substance: IBUPROFEN
     Indication: PROCEDURAL PAIN
     Route: 065
  4. CELECOXIB. [Suspect]
     Active Substance: CELECOXIB
     Indication: PROCEDURAL PAIN
  5. DICLOFENAC [Suspect]
     Active Substance: DICLOFENAC
     Indication: PROCEDURAL PAIN
     Route: 065
  6. CELECOXIB. [Suspect]
     Active Substance: CELECOXIB
     Indication: PROCEDURAL PAIN
     Route: 065
  7. IBUPROFEN. [Suspect]
     Active Substance: IBUPROFEN
     Indication: PROCEDURAL PAIN
  8. DICLOFENAC [Suspect]
     Active Substance: DICLOFENAC
     Indication: PROCEDURAL PAIN

REACTIONS (1)
  - Anastomotic leak [Unknown]
